FAERS Safety Report 15369140 (Version 1)
Quarter: 2018Q3

REPORT INFORMATION
  Report Type: Spontaneous
  Country: IT (occurrence: IT)
  Receive Date: 20180911
  Receipt Date: 20180911
  Transmission Date: 20181010
  Serious: Yes (Hospitalization)
  Sender: FDA-Public Use
  Company Number: IT-ASTRAZENECA-2018SF11231

PATIENT
  Age: 60 Year
  Sex: Female

DRUGS (4)
  1. TAVOR 2,5 MG COMPRESSE [Concomitant]
     Active Substance: LORAZEPAM
  2. SEROQUEL [Suspect]
     Active Substance: QUETIAPINE FUMARATE
     Indication: MAJOR DEPRESSION
     Route: 048
     Dates: start: 20171101, end: 20180401
  3. ZOLOFT COMPRESSE RIVESTITE CON FILM 100 MG [Concomitant]
  4. TOPIRAMATE. [Concomitant]
     Active Substance: TOPIRAMATE

REACTIONS (1)
  - Electrocardiogram QT prolonged [Recovering/Resolving]

NARRATIVE: CASE EVENT DATE: 20180401
